FAERS Safety Report 8182703-9 (Version None)
Quarter: 2012Q1

REPORT INFORMATION
  Report Type: 
  Country: None (occurrence: None)
  Receive Date: 20120305
  Receipt Date: 20120228
  Transmission Date: 20120608
  Serious: No
  Sender: FDA-Public Use
  Company Number: US-PFIZER INC-2012052927

PATIENT
  Sex: Male
  Weight: 63.492 kg

DRUGS (4)
  1. METOPROLOL [Concomitant]
     Dosage: 25 MG, UNK
  2. DETROL LA [Suspect]
     Indication: HYPERTONIC BLADDER
     Dosage: 2 MG, 1X/DAY
     Route: 048
     Dates: start: 20111201
  3. DILTIAZEM [Concomitant]
     Indication: MYOCARDIAL INFARCTION
     Dosage: UNK
  4. LISINOPRIL [Concomitant]
     Indication: MYOCARDIAL INFARCTION
     Dosage: UNK

REACTIONS (2)
  - DRUG INEFFECTIVE [None]
  - NOCTURIA [None]
